FAERS Safety Report 4357190-9 (Version None)
Quarter: 2004Q2

REPORT INFORMATION
  Report Type: 
  Country: None (occurrence: None)
  Receive Date: 20040512
  Receipt Date: 20040512
  Transmission Date: 20050107
  Serious: Yes (Hospitalization, Other)
  Sender: FDA-Public Use
  Company Number: None

PATIENT
  Age: 53 Year
  Sex: Female
  Weight: 45.3597 kg

DRUGS (1)
  1. BETASERON [Suspect]
     Indication: MULTIPLE SCLEROSIS
     Dosage: 1.2 ML 3X WEEK SUBCUTANEOUS
     Route: 058
     Dates: start: 20040331, end: 20040511

REACTIONS (2)
  - ABSCESS [None]
  - INJECTION SITE CELLULITIS [None]
